FAERS Safety Report 5886088-X (Version None)
Quarter: 2008Q3

REPORT INFORMATION
  Report Type: 
  Country: None (occurrence: None)
  Receive Date: 20080917
  Receipt Date: 20080908
  Transmission Date: 20090109
  Serious: Yes (Hospitalization)
  Sender: FDA-Public Use
  Company Number: NL-AMGEN-UK306490

PATIENT
  Sex: Female

DRUGS (4)
  1. NEULASTA [Suspect]
     Indication: CHEMOTHERAPY
     Dates: start: 20080401
  2. DOCETAXEL [Suspect]
     Dates: start: 20080401
  3. DOXORUBICIN HYDROCHLORIDE [Suspect]
     Dates: start: 20080401
  4. CYCLOPHOSPHAMIDE [Suspect]
     Dates: start: 20080401

REACTIONS (1)
  - PYREXIA [None]
